FAERS Safety Report 23578477 (Version 1)
Quarter: 2024Q1

REPORT INFORMATION
  Report Type: Spontaneous
  Country: US (occurrence: US)
  Receive Date: 20240229
  Receipt Date: 20240229
  Transmission Date: 20240409
  Serious: No
  Sender: FDA-Public Use
  Company Number: US-JNJFOC-20240246179

PATIENT
  Age: 8 Decade
  Sex: Male

DRUGS (4)
  1. MOTRIN [Suspect]
     Active Substance: IBUPROFEN
     Indication: Back pain
     Dosage: PRESENT USE
     Route: 065
     Dates: start: 202312
  2. MOTRIN [Suspect]
     Active Substance: IBUPROFEN
     Indication: Myalgia
     Dosage: PAST USE (PATIENT HAS BEEN USING FOR YEARS)
     Route: 065
  3. PREDNISONE [Concomitant]
     Active Substance: PREDNISONE
     Indication: Product used for unknown indication
     Route: 065
  4. TYLENOL EXTRA STRENGTH [Concomitant]
     Active Substance: ACETAMINOPHEN
     Indication: Back pain
     Route: 065

REACTIONS (1)
  - Vision blurred [Not Recovered/Not Resolved]
